FAERS Safety Report 4713392-0 (Version None)
Quarter: 2005Q3

REPORT INFORMATION
  Report Type: 
  Country: None (occurrence: None)
  Receive Date: 20050711
  Receipt Date: 20050620
  Transmission Date: 20060218
  Serious: Yes (Life-Threatening)
  Sender: FDA-Public Use
  Company Number: 215464

PATIENT
  Age: 70 Year
  Sex: Female
  Weight: 59.5 kg

DRUGS (8)
  1. RITUXAN [Suspect]
     Indication: NON-HODGKIN'S LYMPHOMA
     Dosage: 580 MG, INTRAVENOUS
     Route: 042
     Dates: start: 20011207, end: 20020318
  2. CYCLOPHOSPHAMIDE [Suspect]
     Indication: NON-HODGKIN'S LYMPHOMA
     Dosage: 1200 MG, XD1, INTRAVENOUS
     Route: 042
     Dates: start: 20020115
  3. DOXORUBICIN HYDROCHLORIDE [Suspect]
     Indication: NON-HODGKIN'S LYMPHOMA
     Dosage: 50 MG, XD1, INTRAVENOUS
     Route: 042
     Dates: start: 20020115
  4. VINCRISTINE SULFATE [Suspect]
     Indication: NON-HODGKIN'S LYMPHOMA
     Dosage: 2 MG, XD1, INTRAVENOUS
     Route: 042
     Dates: start: 20020115
  5. PREDONINE(PREDNISOLONE ACETATE, PREDNISOLONE, PREDNISOLONE SODIUM SUCC [Suspect]
     Indication: NON-HODGKIN'S LYMPHOMA
     Dosage: 90 MG, XD1-5
     Dates: start: 20020115
  6. ACETAMINOPHEN [Concomitant]
  7. POLARAMINE [Concomitant]
  8. KYTRIL [Concomitant]

REACTIONS (3)
  - ATONIC SEIZURES [None]
  - DEPRESSED LEVEL OF CONSCIOUSNESS [None]
  - VENTRICULAR TACHYCARDIA [None]
